FAERS Safety Report 12140042 (Version 1)
Quarter: 2016Q1

REPORT INFORMATION
  Report Type: Spontaneous
  Country: FR (occurrence: FR)
  Receive Date: 20160303
  Receipt Date: 20160303
  Transmission Date: 20160526
  Serious: Yes (Death, Other)
  Sender: FDA-Public Use
  Company Number: 128108

PATIENT
  Age: 46 Year
  Sex: Male

DRUGS (2)
  1. ARACYTINE [Suspect]
     Active Substance: CYTARABINE
     Indication: ACUTE MYELOID LEUKAEMIA
     Route: 042
     Dates: start: 20100423, end: 20100429
  2. CERUBIDINE [Suspect]
     Active Substance: DAUNORUBICIN HYDROCHLORIDE
     Indication: ACUTE MYELOID LEUKAEMIA
     Route: 042
     Dates: start: 20080423, end: 20080425

REACTIONS (3)
  - Febrile infection [Recovered/Resolved]
  - Bone marrow failure [Recovered/Resolved]
  - Thrombocytopenia [Recovered/Resolved]

NARRATIVE: CASE EVENT DATE: 201004
